FAERS Safety Report 21788532 (Version 1)
Quarter: 2022Q4

REPORT INFORMATION
  Report Type: Spontaneous
  Country: US (occurrence: US)
  Receive Date: 20221228
  Receipt Date: 20221228
  Transmission Date: 20230112
  Serious: No
  Sender: FDA-Public Use
  Company Number: US-IDORSIA-002566-2022-US

PATIENT
  Sex: Female

DRUGS (1)
  1. QUVIVIQ [Suspect]
     Active Substance: DARIDOREXANT
     Indication: Insomnia
     Dosage: 25 MG (HALF OF 50 MG), QD
     Route: 048

REACTIONS (3)
  - Abnormal dreams [Unknown]
  - Hallucination [Unknown]
  - Wrong technique in product usage process [Unknown]
